FAERS Safety Report 9065787 (Version 1)
Quarter: 2013Q1

REPORT INFORMATION
  Report Type: Report from Study
  Country: US (occurrence: US)
  Receive Date: 20130131
  Receipt Date: 20130131
  Transmission Date: 20140127
  Serious: No
  Sender: FDA-Public Use
  Company Number: US-ABBOTT-12P-163-1023105-00

PATIENT
  Age: 39 Year
  Sex: Female

DRUGS (9)
  1. HUMIRA [Suspect]
     Indication: COLITIS ULCERATIVE
     Dates: start: 20121112, end: 20121112
  2. HUMIRA [Suspect]
     Dates: start: 20121126, end: 20121210
  3. HUMIRA [Suspect]
     Dates: start: 20121210
  4. PREDNISONE [Concomitant]
     Indication: PRODUCT USED FOR UNKNOWN INDICATION
     Dosage: 20 MG DAILY
  5. ASACOL [Concomitant]
     Indication: PRODUCT USED FOR UNKNOWN INDICATION
     Dosage: 1600MG EVERY MORNING AND 1600 MG AT BEDTIME
  6. AZATHIOPRINE [Concomitant]
     Indication: PRODUCT USED FOR UNKNOWN INDICATION
     Dosage: 150 MG DAILIY
  7. ZANTAC [Concomitant]
     Indication: PRODUCT USED FOR UNKNOWN INDICATION
     Dosage: AT BEDTIME
  8. LASIX [Concomitant]
     Indication: SYNOVIAL CYST
     Dosage: 20 MG DAILY
  9. HCTZ [Concomitant]
     Indication: MIGRAINE PROPHYLAXIS
     Dosage: 25 MG DAILY

REACTIONS (2)
  - Blepharospasm [Not Recovered/Not Resolved]
  - Arthralgia [Not Recovered/Not Resolved]
